FAERS Safety Report 12111024 (Version 7)
Quarter: 2016Q3

REPORT INFORMATION
  Report Type: Spontaneous
  Country: IT (occurrence: IT)
  Receive Date: 20160224
  Receipt Date: 20160902
  Transmission Date: 20161109
  Serious: Yes (Hospitalization)
  Sender: FDA-Public Use
  Company Number: IT-BIOGEN-2016BI00186062

PATIENT
  Age: 38 Year
  Sex: Female
  Weight: 63 kg

DRUGS (1)
  1. TYSABRI [Suspect]
     Active Substance: NATALIZUMAB
     Indication: MULTIPLE SCLEROSIS
     Route: 042
     Dates: end: 20160122

REACTIONS (2)
  - Progressive multifocal leukoencephalopathy [Recovered/Resolved with Sequelae]
  - Immune reconstitution inflammatory syndrome [Recovered/Resolved with Sequelae]

NARRATIVE: CASE EVENT DATE: 20160204
